FAERS Safety Report 16048693 (Version 2)
Quarter: 2019Q1

REPORT INFORMATION
  Report Type: Spontaneous
  Country: IL (occurrence: IL)
  Receive Date: 20190307
  Receipt Date: 20190307
  Transmission Date: 20190418
  Serious: Yes (Hospitalization, Congenital Anomaly)
  Sender: FDA-Public Use
  Company Number: IL-FOUNDATIONCONSUMERHC-2019-IL-000001

PATIENT
  Sex: 0

DRUGS (1)
  1. LEVONORGESTREL (UNSPECIFIED) [Suspect]
     Active Substance: LEVONORGESTREL
     Indication: POST COITAL CONTRACEPTION
     Dosage: (1.5 MG)
     Route: 050
     Dates: start: 20180714, end: 20180714

REACTIONS (2)
  - Foetal growth restriction [Not Recovered/Not Resolved]
  - Portal shunt [Not Recovered/Not Resolved]
